FAERS Safety Report 12453292 (Version 1)
Quarter: 2016Q2

REPORT INFORMATION
  Report Type: Spontaneous
  Country: PL (occurrence: PL)
  Receive Date: 20160609
  Receipt Date: 20160609
  Transmission Date: 20160815
  Serious: Yes (Other)
  Sender: FDA-Public Use
  Company Number: PL-MYLANLABS-2016M1023673

PATIENT

DRUGS (4)
  1. OXALIPLATIN. [Suspect]
     Active Substance: OXALIPLATIN
     Indication: METASTASES TO LIVER
     Dosage: ON DAY 1, 85MG/M2
     Route: 041
     Dates: start: 201211, end: 201403
  2. FLUOROURACIL. [Suspect]
     Active Substance: FLUOROURACIL
     Dosage: ON DAY 1, 600 MG/M2 AS A 22-HOUR CONTINUOUS INFUSION
     Route: 041
     Dates: end: 201403
  3. FOLINIC ACID [Suspect]
     Active Substance: LEUCOVORIN
     Indication: METASTASES TO LIVER
     Dosage: ON DAY 1, 200 MG/M2 GIVEN OVER 120 MINUTES
     Route: 041
     Dates: start: 201211, end: 201403
  4. FLUOROURACIL. [Suspect]
     Active Substance: FLUOROURACIL
     Indication: METASTASES TO LIVER
     Dosage: ON DAY 1, 400 MG/M2 GIVEN OVER 2-4 MINUTES
     Route: 040
     Dates: start: 201211, end: 201403

REACTIONS (4)
  - Chills [Unknown]
  - Drug intolerance [Unknown]
  - Formication [Unknown]
  - Musculoskeletal pain [Unknown]
